FAERS Safety Report 5586198-0 (Version None)
Quarter: 2008Q1

REPORT INFORMATION
  Report Type: 
  Country: None (occurrence: None)
  Receive Date: 20080107
  Receipt Date: 20071228
  Transmission Date: 20080703
  Serious: Yes (Other)
  Sender: FDA-Public Use
  Company Number: CHPA2007US14513

PATIENT
  Age: 40 Year
  Sex: Male

DRUGS (1)
  1. THERAFLU DAYTIME SEVERE COLD WARMING SYRUP (NCH)(PARACETAMOL, DEXTROME [Suspect]

REACTIONS (3)
  - DYSPHAGIA [None]
  - DYSPNOEA [None]
  - PHARYNGEAL OEDEMA [None]
